FAERS Safety Report 13122743 (Version 6)
Quarter: 2017Q3

REPORT INFORMATION
  Report Type: Spontaneous
  Country: IT (occurrence: IT)
  Receive Date: 20170117
  Receipt Date: 20170802
  Transmission Date: 20171127
  Serious: Yes (Hospitalization)
  Sender: FDA-Public Use
  Company Number: IT-SA-2017SA003059

PATIENT
  Age: 2 Month
  Sex: Male
  Weight: 5 kg

DRUGS (7)
  1. MYOZYME [Suspect]
     Active Substance: ALGLUCOSIDASE ALFA
     Indication: GLYCOGEN STORAGE DISEASE TYPE II
     Dosage: FREQUENCY: CYCLIC
     Route: 041
  2. MYOZYME [Suspect]
     Active Substance: ALGLUCOSIDASE ALFA
     Indication: GLYCOGEN STORAGE DISEASE TYPE II
     Dosage: FREQUENCY: CYCLIC
     Route: 041
  3. METHOTREXATE. [Concomitant]
     Active Substance: METHOTREXATE
  4. MYOZYME [Suspect]
     Active Substance: ALGLUCOSIDASE ALFA
     Indication: GLYCOGEN STORAGE DISEASE TYPE II
     Dosage: DOSE: ON 11-JAN: 6 MG/KG, ON-12 JAN: 16 MG, ON 13-JAN: 26 MG: 20MG/KG IN JAN-2017; FREQUENCY: CYCLIC
     Route: 041
     Dates: start: 20160111
  5. CEFTRIAXONE. [Concomitant]
     Active Substance: CEFTRIAXONE
     Route: 042
     Dates: start: 20170103, end: 20170104
  6. MYOZYME [Suspect]
     Active Substance: ALGLUCOSIDASE ALFA
     Indication: GLYCOGEN STORAGE DISEASE TYPE II
     Dosage: DOSE: ON 11-JAN: 6 MG/KG, ON-12 JAN: 16 MG, ON 13-JAN: 26 MG: 20MG/KG IN JAN-2017; FREQUENCY: CYCLIC
     Route: 041
     Dates: start: 20160111
  7. UGUROL [Concomitant]
     Active Substance: TRANEXAMIC ACID

REACTIONS (5)
  - Bronchostenosis [Recovered/Resolved]
  - Cough [Recovered/Resolved]
  - Bronchospasm [Recovering/Resolving]
  - Urticaria [Recovered/Resolved]
  - Allergic oedema [Recovered/Resolved]

NARRATIVE: CASE EVENT DATE: 20170104
